FAERS Safety Report 6576698-9 (Version None)
Quarter: 2010Q1

REPORT INFORMATION
  Report Type: 
  Country: None (occurrence: None)
  Receive Date: 20100210
  Receipt Date: 20100203
  Transmission Date: 20100710
  Serious: Yes (Other)
  Sender: FDA-Public Use
  Company Number: US-ROCHE-605286

PATIENT
  Sex: Male
  Weight: 70.3 kg

DRUGS (7)
  1. CAPECITABINE [Suspect]
     Indication: BILE DUCT CANCER
     Route: 048
     Dates: start: 20081102, end: 20090429
  2. CAPECITABINE [Suspect]
     Dosage: FREQUENCY: 2 TAB AM: 1 TAB PM
     Route: 048
     Dates: start: 20091102, end: 20100104
  3. METFORMIN HCL [Concomitant]
     Dosage: TAKEN DAILY.
     Route: 048
     Dates: start: 20080909
  4. AZOR [Concomitant]
     Indication: HYPERTENSION
     Dosage: STRENGTH REPORTED AS: 10-40 MG, TAKEN DAILY.
     Route: 048
     Dates: start: 20080711
  5. HYDROCHLOROTHIAZIDE [Concomitant]
     Indication: HYPERTENSION
     Dosage: TAKEN DAILY.
     Dates: start: 20080711
  6. LANTUS [Concomitant]
     Dosage: STRENGHT REPORTED AS: 40 UNITS, TAKEN DAILY.
     Route: 058
     Dates: start: 20081023
  7. BENAZEPRIL HYDROCHLORIDE [Concomitant]
     Indication: HYPERTENSION
     Dosage: TAKEN DAILY.
     Route: 048
     Dates: start: 20080805

REACTIONS (4)
  - INFLAMMATION [None]
  - MALIGNANT NEOPLASM PROGRESSION [None]
  - PALMAR-PLANTAR ERYTHRODYSAESTHESIA SYNDROME [None]
  - SKIN EXFOLIATION [None]
